FAERS Safety Report 9196819 (Version 2)
Quarter: 2013Q1

REPORT INFORMATION
  Report Type: Report from Study
  Country: GB (occurrence: GB)
  Receive Date: 20130328
  Receipt Date: 20130328
  Transmission Date: 20140127
  Serious: Yes (Hospitalization)
  Sender: FDA-Public Use
  Company Number: GB-009507513-0810GBR00047

PATIENT
  Age: 62 Year
  Sex: Male

DRUGS (9)
  1. NIACIN (+) LAROPIPRANT [Suspect]
     Indication: HIGH DENSITY LIPOPROTEIN DECREASED
     Dosage: 1 G/20 MG TABLET, 2 TABLETS QD
     Route: 048
     Dates: start: 20080715, end: 20081004
  2. MK-0524 [Suspect]
     Indication: HIGH DENSITY LIPOPROTEIN DECREASED
     Dosage: 1 G, QD
     Route: 048
     Dates: start: 20080510, end: 200806
  3. MK-0524 [Suspect]
     Dosage: 2 G, QD
     Route: 048
     Dates: start: 200806, end: 20080714
  4. RAMIPRIL [Concomitant]
  5. NITROLINGUAL [Concomitant]
  6. ASPIRIN [Concomitant]
  7. AMLODIPINE BESYLATE [Concomitant]
  8. TIMOLOL [Concomitant]
  9. VYTORIN [Suspect]
     Indication: HYPERCHOLESTEROLAEMIA
     Dosage: 10-40MG, QD
     Route: 048
     Dates: start: 20080410

REACTIONS (5)
  - Syncope [Recovered/Resolved]
  - Flushing [None]
  - Defaecation urgency [None]
  - Chest pain [None]
  - Hypotension [None]
